FAERS Safety Report 5637874-2 (Version None)
Quarter: 2008Q1

REPORT INFORMATION
  Report Type: 
  Country: None (occurrence: None)
  Receive Date: 20080220
  Receipt Date: 20080209
  Transmission Date: 20080703
  Serious: Yes (Other)
  Sender: FDA-Public Use
  Company Number: 2008003649

PATIENT
  Sex: Female

DRUGS (1)
  1. LISTERINE WHITENING PRE-BRUSH RINSE (NO ACTIVE INGREDIENT) [Suspect]
     Indication: DENTAL CARE
     Dosage: UNSPECIFIED, ORAL
     Route: 048

REACTIONS (4)
  - EAR PAIN [None]
  - GLOSSODYNIA [None]
  - PHARYNGOLARYNGEAL PAIN [None]
  - TONGUE BLISTERING [None]
